FAERS Safety Report 7456050-4 (Version None)
Quarter: 2011Q2

REPORT INFORMATION
  Report Type: 
  Country: None (occurrence: None)
  Receive Date: 20110503
  Receipt Date: 20110428
  Transmission Date: 20111010
  Serious: No
  Sender: FDA-Public Use
  Company Number: US-PFIZER INC-2011083580

PATIENT
  Sex: Male
  Weight: 118 kg

DRUGS (18)
  1. TAMSULOSIN [Concomitant]
     Dosage: 0.4 MG, 1X/DAY
  2. VITAMIN E [Concomitant]
     Dosage: UNK
  3. VITAMIN B-12 [Concomitant]
     Dosage: UNK
  4. MULTI-VITAMINS [Concomitant]
     Dosage: UNK
  5. NEXIUM [Concomitant]
     Indication: GASTROOESOPHAGEAL REFLUX DISEASE
     Dosage: 40 MG, 1X/DAY
  6. PROCARDIA XL [Suspect]
     Dosage: 60 MG, 1X/DAY
     Route: 048
     Dates: start: 20110401
  7. DARVOCET [Concomitant]
     Indication: BACK PAIN
  8. VITAMIN C [Concomitant]
     Dosage: UNK
  9. ALDACTONE [Concomitant]
     Indication: HYPERTENSION
     Dosage: 30 MG, 1X/DAY
  10. CHONDROITIN/GLUCOSAMINE [Concomitant]
     Dosage: UNK
  11. DARVOCET [Concomitant]
     Indication: ARTHRALGIA
     Dosage: UNK
  12. DARVOCET [Concomitant]
     Indication: NECK PAIN
  13. ACETYLSALICYLIC ACID [Concomitant]
     Dosage: 325 MG, 1X/DAY
  14. PROCARDIA XL [Suspect]
     Indication: HYPERTENSION
     Dosage: 30 MG, 1X/DAY
     Route: 048
     Dates: end: 20110401
  15. DIOVAN [Concomitant]
     Indication: HYPERTENSION
     Dosage: 320 MG, 1X/DAY
  16. POTASSIUM [Concomitant]
     Dosage: 20 MEQ, 16 A DAY
  17. FLAXSEED OIL [Concomitant]
     Dosage: UNK
  18. ODORLESS GARLIC [Concomitant]

REACTIONS (1)
  - BLOOD PRESSURE INCREASED [None]
